FAERS Safety Report 13499016 (Version 1)
Quarter: 2017Q2

REPORT INFORMATION
  Report Type: Report from Study
  Country: GB (occurrence: GB)
  Receive Date: 20170501
  Receipt Date: 20170501
  Transmission Date: 20170830
  Serious: Yes (Death, Other)
  Sender: FDA-Public Use
  Company Number: GB-ROCHE-1926650

PATIENT

DRUGS (1)
  1. ALTEPLASE [Suspect]
     Active Substance: ALTEPLASE
     Indication: ISCHAEMIC STROKE
     Route: 042

REACTIONS (14)
  - Cerebral haemorrhage [Unknown]
  - Pneumonia [Unknown]
  - Urinary tract infection [Unknown]
  - Pneumonia [Fatal]
  - Anaemia [Unknown]
  - Brain oedema [Unknown]
  - Haemorrhagic infarction [Unknown]
  - Osteoarthritis [Unknown]
  - Cerebral haematoma [Unknown]
  - Gingival bleeding [Unknown]
  - Acute myocardial infarction [Fatal]
  - Acute coronary syndrome [Unknown]
  - Ischaemic stroke [Unknown]
  - Mental disorder [Unknown]
